FAERS Safety Report 24674153 (Version 1)
Quarter: 2024Q4

REPORT INFORMATION
  Report Type: Spontaneous
  Country: US (occurrence: US)
  Receive Date: 20241128
  Receipt Date: 20241128
  Transmission Date: 20250115
  Serious: No
  Sender: ROCHE
  Company Number: US-ROCHE-10000143079

PATIENT
  Sex: Female

DRUGS (5)
  1. XOLAIR [Suspect]
     Active Substance: OMALIZUMAB
     Indication: Asthma
     Dosage: INJECT 300 MG (1 PFS) SC EVERY 2 WEEK
     Route: 058
     Dates: start: 202408
  2. XOLAIR [Suspect]
     Active Substance: OMALIZUMAB
  3. ALBUTEROL SU AER 108 (90 [Concomitant]
  4. DULERA AER 200-SMCG/ACT [Concomitant]
  5. GABAPENTIN TAB 800MG [Concomitant]

REACTIONS (2)
  - Drug ineffective [Unknown]
  - No adverse event [Unknown]
